FAERS Safety Report 22648269 (Version 4)
Quarter: 2023Q4

REPORT INFORMATION
  Report Type: Report from Study
  Country: CA (occurrence: CA)
  Receive Date: 20230628
  Receipt Date: 20231107
  Transmission Date: 20240110
  Serious: Yes (Hospitalization)
  Sender: FDA-Public Use
  Company Number: CA-JNJFOC-20230645092

PATIENT
  Age: 66 Year
  Sex: Female
  Weight: 105 kg

DRUGS (2)
  1. STELARA [Suspect]
     Active Substance: USTEKINUMAB
     Indication: Crohn^s disease
     Dosage: EXPIRY DATE: 31-JAN-2026
     Route: 058
     Dates: start: 20201229
  2. STELARA [Suspect]
     Active Substance: USTEKINUMAB

REACTIONS (8)
  - Necrotising fasciitis [Unknown]
  - Cellulitis [Unknown]
  - Diarrhoea [Not Recovered/Not Resolved]
  - Vomiting [Not Recovered/Not Resolved]
  - Localised infection [Recovered/Resolved]
  - Bronchitis [Unknown]
  - Gastrointestinal inflammation [Unknown]
  - Abdominal pain [Not Recovered/Not Resolved]

NARRATIVE: CASE EVENT DATE: 20230101
